FAERS Safety Report 7285446-9 (Version None)
Quarter: 2011Q1

REPORT INFORMATION
  Report Type: 
  Country: None (occurrence: None)
  Receive Date: 20110210
  Receipt Date: 20101221
  Transmission Date: 20110831
  Serious: Yes (Other)
  Sender: FDA-Public Use
  Company Number: US-BAYER-201030302NA

PATIENT
  Sex: Female
  Weight: 86.168 kg

DRUGS (4)
  1. NAPROXEN [Concomitant]
  2. YASMIN [Suspect]
     Indication: PRODUCT USED FOR UNKNOWN INDICATION
     Dosage: START: EARLY 2005
     Route: 048
     Dates: start: 20050314, end: 20060101
  3. YAZ [Suspect]
     Indication: PRODUCT USED FOR UNKNOWN INDICATION
     Dosage: START: EARLY 2005
     Route: 048
     Dates: start: 20050101
  4. YAZ [Suspect]
     Dosage: UNK
     Dates: start: 20070313

REACTIONS (2)
  - PAIN [None]
  - GALLBLADDER INJURY [None]
